FAERS Safety Report 15042748 (Version 1)
Quarter: 2018Q2

REPORT INFORMATION
  Report Type: Spontaneous
  Country: BR (occurrence: BR)
  Receive Date: 20180621
  Receipt Date: 20180621
  Transmission Date: 20180711
  Serious: Yes (Hospitalization, Other)
  Sender: FDA-Public Use
  Company Number: BR-TORRENT-00004390

PATIENT
  Age: 56 Year
  Sex: Male
  Weight: 81 kg

DRUGS (5)
  1. TORLOS [Suspect]
     Active Substance: LOSARTAN POTASSIUM
     Indication: BLOOD PRESSURE ABNORMAL
     Dosage: OTHER BATCH NUMBER IN PACKAGE: CE32D002
     Route: 048
     Dates: start: 2008, end: 201802
  2. AAS [Concomitant]
     Active Substance: ASPIRIN
     Indication: ANTICOAGULANT THERAPY
     Dosage: UNKNOWN
     Route: 048
     Dates: start: 2008
  3. RIVOTRIL [Concomitant]
     Active Substance: CLONAZEPAM
     Indication: SLEEP DISORDER
     Dosage: UNKNOWN
     Route: 048
     Dates: start: 2008
  4. OXYCODONE [Concomitant]
     Active Substance: OXYCODONE
     Indication: PAIN
     Dosage: 2 TABLETS
     Route: 048
  5. HYDROCHLOROTHIAZIDE. [Concomitant]
     Active Substance: HYDROCHLOROTHIAZIDE
     Indication: CEREBROVASCULAR ACCIDENT
     Route: 048
     Dates: start: 2008

REACTIONS (18)
  - Blood pressure increased [Recovered/Resolved]
  - Cerebrovascular accident [Recovered/Resolved]
  - Feeling abnormal [Unknown]
  - Fall [Recovered/Resolved]
  - Dizziness [Recovered/Resolved]
  - Musculoskeletal stiffness [Not Recovered/Not Resolved]
  - Drug ineffective [Unknown]
  - Headache [Recovered/Resolved]
  - Ischaemic stroke [Recovered/Resolved]
  - Locomotive syndrome [Not Recovered/Not Resolved]
  - Upper limb fracture [Unknown]
  - Fatigue [Recovered/Resolved]
  - Bladder cancer [Recovered/Resolved]
  - Malaise [Recovered/Resolved]
  - Erectile dysfunction [Unknown]
  - Prostate cancer [Recovered/Resolved]
  - Neoplasm [Unknown]
  - Withdrawal syndrome [Unknown]

NARRATIVE: CASE EVENT DATE: 2010
